FAERS Safety Report 19814780 (Version 1)
Quarter: 2021Q3

REPORT INFORMATION
  Report Type: Spontaneous
  Country: FR (occurrence: FR)
  Receive Date: 20210910
  Receipt Date: 20210910
  Transmission Date: 20211014
  Serious: Yes (Other)
  Sender: FDA-Public Use
  Company Number: FR-ASTRAZENECA-2021A721202

PATIENT
  Age: 83 Year
  Sex: Female

DRUGS (6)
  1. AMOROLFINE ARROW [Concomitant]
     Indication: PRODUCT USED FOR UNKNOWN INDICATION
     Dosage: UNK
  2. LEXOMIL [Concomitant]
     Active Substance: BROMAZEPAM
     Indication: PRODUCT USED FOR UNKNOWN INDICATION
     Dosage: UNK
  3. PREVISCAN [Concomitant]
     Indication: PRODUCT USED FOR UNKNOWN INDICATION
     Dosage: UNK
  4. VASTEN [Concomitant]
     Indication: PRODUCT USED FOR UNKNOWN INDICATION
     Dosage: UNK
  5. INEXIUM [Suspect]
     Active Substance: ESOMEPRAZOLE
     Indication: GASTROOESOPHAGEAL REFLUX DISEASE
     Route: 048
  6. TEMERIT [Concomitant]
     Active Substance: NEBIVOLOL
     Indication: PRODUCT USED FOR UNKNOWN INDICATION
     Dosage: 0.25 DOSAGE FORM, 2/DAY

REACTIONS (14)
  - Erythema [Unknown]
  - Incorrect product administration duration [Unknown]
  - Dermo-hypodermitis [Unknown]
  - Polyp [Unknown]
  - Fungal infection [Unknown]
  - Pruritus [Unknown]
  - Paraesthesia [Unknown]
  - Arterial disorder [Unknown]
  - Hiatus hernia [Unknown]
  - Product dose omission issue [Unknown]
  - Erosive oesophagitis [Unknown]
  - Abdominal distension [Unknown]
  - Blood folate decreased [Unknown]
  - Rebound effect [Unknown]
